FAERS Safety Report 10103098 (Version 2)
Quarter: 2014Q2

REPORT INFORMATION
  Report Type: Spontaneous
  Country: US (occurrence: US)
  Receive Date: 20140424
  Receipt Date: 20140515
  Transmission Date: 20141212
  Serious: Yes (Other)
  Sender: FDA-Public Use
  Company Number: US-GLAXOSMITHKLINE-A1069779A

PATIENT
  Age: 67 Year
  Sex: Male

DRUGS (5)
  1. MEKINIST [Suspect]
     Indication: MALIGNANT MELANOMA
     Dosage: 2MG PER DAY
     Route: 048
     Dates: start: 20140321
  2. TAFINLAR [Suspect]
     Indication: MALIGNANT MELANOMA
     Dosage: 150MG TWICE PER DAY
     Route: 048
     Dates: start: 20140321
  3. ATENOLOL [Concomitant]
  4. CLOPIDOGREL [Concomitant]
  5. TRIBENZOR [Concomitant]

REACTIONS (2)
  - Deafness [Not Recovered/Not Resolved]
  - Hearing impaired [Not Recovered/Not Resolved]
